FAERS Safety Report 8524824-4 (Version None)
Quarter: 2012Q3

REPORT INFORMATION
  Report Type: 
  Country: None (occurrence: None)
  Receive Date: 20120720
  Receipt Date: 20120717
  Transmission Date: 20120928
  Serious: Yes (Death)
  Sender: FDA-Public Use
  Company Number: RU-VIIV HEALTHCARE LIMITED-B0815804A

PATIENT
  Sex: Male
  Weight: 75 kg

DRUGS (7)
  1. DARUNAVIR ETHANOLATE [Concomitant]
     Indication: HIV INFECTION
     Dosage: 1200MG PER DAY
     Route: 048
     Dates: start: 20100304, end: 20120222
  2. ISONIAZID [Concomitant]
     Indication: PULMONARY TUBERCULOSIS
     Dosage: 600MG PER DAY
     Route: 048
     Dates: start: 20111122, end: 20120222
  3. ABACAVIR [Suspect]
     Indication: HIV INFECTION
     Dosage: 600MG PER DAY
     Route: 048
     Dates: start: 20100304, end: 20120222
  4. DIDANOSINE [Concomitant]
     Indication: PULMONARY TUBERCULOSIS
     Dosage: 400MG PER DAY
     Route: 048
     Dates: start: 20100304, end: 20120222
  5. PYRAZINAMIDE [Concomitant]
     Indication: HIV INFECTION
     Dosage: 1500MG PER DAY
     Route: 048
     Dates: start: 20111122, end: 20120222
  6. RITONAVIR [Concomitant]
     Indication: HIV INFECTION
     Dosage: 200MG PER DAY
     Route: 048
     Dates: start: 20100304, end: 20120222
  7. RIFABUTIN [Concomitant]
     Indication: PULMONARY TUBERCULOSIS
     Dosage: 600MG PER DAY
     Route: 048
     Dates: start: 20111122, end: 20120222

REACTIONS (1)
  - MYOCARDIAL INFARCTION [None]
